FAERS Safety Report 4323980-1 (Version None)
Quarter: 2004Q1

REPORT INFORMATION
  Report Type: 
  Country: None (occurrence: None)
  Receive Date: 20040326
  Receipt Date: 20031203
  Transmission Date: 20041129
  Serious: No
  Sender: FDA-Public Use
  Company Number: US-GLAXOSMITHKLINE-A0441741A

PATIENT
  Sex: Female

DRUGS (4)
  1. ADVAIR DISKUS 100/50 [Suspect]
     Indication: ASTHMA
     Dosage: 1BLS PER DAY
     Route: 055
     Dates: start: 20031122
  2. SYNTHROID [Concomitant]
  3. PLAVIX [Concomitant]
  4. TRENTAL [Concomitant]

REACTIONS (3)
  - RENAL PAIN [None]
  - SKIN NODULE [None]
  - VASOCONSTRICTION [None]
